FAERS Safety Report 9367832 (Version 1)
Quarter: 2013Q2

REPORT INFORMATION
  Report Type: Spontaneous
  Country: US (occurrence: US)
  Receive Date: 20130625
  Receipt Date: 20130625
  Transmission Date: 20140414
  Serious: No
  Sender: FDA-Public Use
  Company Number: US-ASTELLAS-2012US009987

PATIENT
  Sex: Female
  Weight: 86 kg

DRUGS (5)
  1. VESICARE [Suspect]
     Indication: INCONTINENCE
     Dosage: 10 MG, UID/QD
     Route: 048
     Dates: start: 201209
  2. XANAX [Concomitant]
     Indication: ANXIETY
     Dosage: 25 MG, PRN
     Route: 048
     Dates: start: 201209
  3. ASPIRIN [Concomitant]
     Indication: CARDIAC DISORDER
     Dosage: 81 MG, UID/QD
     Route: 048
     Dates: start: 201209
  4. TYLENOL W/CODEINE NO. 3 [Concomitant]
     Indication: PAIN
     Dosage: UNK
     Route: 048
  5. MIRTAZAPINE [Concomitant]
     Indication: SLEEP DISORDER
     Dosage: 30 MG, UID/QD
     Route: 048

REACTIONS (1)
  - Drug ineffective [Unknown]
